FAERS Safety Report 8568425 (Version 3)
Quarter: 2016Q2

REPORT INFORMATION
  Report Type: Report from Study
  Country: DE (occurrence: DE)
  Receive Date: 20120518
  Receipt Date: 20160627
  Transmission Date: 20160815
  Serious: Yes (Hospitalization)
  Sender: FDA-Public Use
  Company Number: DE-TEVA-323696USA

PATIENT
  Age: 76 Year
  Sex: Male

DRUGS (8)
  1. RITUXIMAB [Concomitant]
     Active Substance: RITUXIMAB
     Dates: start: 20120208
  2. ALLOPURINOL. [Concomitant]
     Active Substance: ALLOPURINOL
     Dates: start: 20120208
  3. PREDNISOLONE. [Concomitant]
     Active Substance: PREDNISOLONE
     Dates: start: 20120118
  4. BENDAMUSTINE [Suspect]
     Active Substance: BENDAMUSTINE
     Dosage: 200 MILLIGRAM DAILY; CYCLE 1 (DAY 1+2)
     Route: 042
     Dates: start: 20120209
  5. BENDAMUSTINE [Suspect]
     Active Substance: BENDAMUSTINE
     Dosage: 200 MILLIGRAM DAILY; CYCLE 2 (DAY 1+2)
     Route: 042
     Dates: start: 20120306
  6. BENDAMUSTINE [Suspect]
     Active Substance: BENDAMUSTINE
     Dosage: 200 MILLIGRAM DAILY; CYCLE 4 (DAY 1+2)
     Route: 042
     Dates: start: 20120613
  7. BENDAMUSTINE [Suspect]
     Active Substance: BENDAMUSTINE
     Dosage: 200 MILLIGRAM DAILY; CYCLE 3 (DAY 1+2)
     Route: 042
     Dates: start: 20120416
  8. BENDAMUSTINE [Suspect]
     Active Substance: BENDAMUSTINE
     Dosage: 200 MILLIGRAM DAILY; CYCLE 5 (DAY 1+2)
     Route: 042
     Dates: start: 20120808

REACTIONS (4)
  - Pyrexia [Recovered/Resolved]
  - Cholangitis acute [Recovered/Resolved]
  - Chills [Recovered/Resolved]
  - Escherichia sepsis [Not Recovered/Not Resolved]

NARRATIVE: CASE EVENT DATE: 20120211
